FAERS Safety Report 5946794-5 (Version None)
Quarter: 2008Q4

REPORT INFORMATION
  Report Type: 
  Country: None (occurrence: None)
  Receive Date: 20081107
  Receipt Date: 20081107
  Transmission Date: 20090506
  Serious: Yes (Hospitalization)
  Sender: FDA-Public Use
  Company Number: None

PATIENT
  Age: 36 Year
  Sex: Female
  Weight: 68.1 kg

DRUGS (11)
  1. DASATINIB [Suspect]
     Indication: BREAST CANCER STAGE IV
     Dosage: 70 MG BID PO
     Route: 048
     Dates: start: 20081015, end: 20081105
  2. MS CONTIN [Concomitant]
  3. VOLTAREN [Concomitant]
  4. DICLOFENAC SODIUM [Concomitant]
  5. ARTHRITIC PAIN [Concomitant]
  6. VICODIN [Concomitant]
  7. HYDROCODONE BITARTRATE [Concomitant]
  8. M.V.I. [Concomitant]
  9. AMITRIPTYLINE HCL [Concomitant]
  10. ACETAMINOPHEN [Concomitant]
  11. DASATINB [Suspect]

REACTIONS (2)
  - PLEURAL EFFUSION [None]
  - PNEUMONITIS [None]
